FAERS Safety Report 8557870 (Version 2)
Quarter: 2012Q4

REPORT INFORMATION
  Report Type: 
  Country: US (occurrence: US)
  Receive Date: 20120511
  Receipt Date: 20121111
  Transmission Date: 20130627
  Serious: Yes (Hospitalization, Other)
  Sender: FDA-Public Use
  Company Number: PHEH2012US009600

PATIENT
  Age: 62 Year
  Sex: Female

DRUGS (6)
  1. TOBI [Suspect]
     Indication: CYSTIC FIBROSIS
     Dosage: 300 mg, BID
     Dates: start: 201112
  2. DUONEB [Concomitant]
  3. SODIUM CHLORIDE SOLUTION [Concomitant]
     Dosage: UNK
  4. PULMOZYME [Concomitant]
  5. ACAPELLA [Concomitant]
  6. COLISTIN [Concomitant]

REACTIONS (7)
  - Infection [Unknown]
  - Pleurisy [Unknown]
  - Lung infection [Not Recovered/Not Resolved]
  - Haemoptysis [Unknown]
  - Pseudomonas infection [Not Recovered/Not Resolved]
  - Pathogen resistance [Not Recovered/Not Resolved]
  - Haemoglobin decreased [Unknown]
